FAERS Safety Report 11069831 (Version 1)
Quarter: 2015Q2

REPORT INFORMATION
  Report Type: Spontaneous
  Country: US (occurrence: US)
  Receive Date: 20150427
  Receipt Date: 20150427
  Transmission Date: 20150821
  Serious: No
  Sender: FDA-Public Use
  Company Number: US-MALLINCKRODT-T201501101

PATIENT
  Age: 57 Year
  Sex: Female
  Weight: 66.21 kg

DRUGS (1)
  1. HYDROCODONE/ACETAMINOPHEN [Suspect]
     Active Substance: ACETAMINOPHEN\HYDROCODONE
     Indication: PAIN
     Dosage: 1 TABLET EVERY 4-6 HOURS PRN
     Route: 048
     Dates: start: 201411

REACTIONS (5)
  - Oral discomfort [Recovered/Resolved]
  - Product taste abnormal [Recovered/Resolved]
  - Suspected counterfeit product [Unknown]
  - Malaise [Recovered/Resolved]
  - Drug ineffective [Recovered/Resolved]

NARRATIVE: CASE EVENT DATE: 201411
